FAERS Safety Report 9228797 (Version 1)
Quarter: 2013Q2

REPORT INFORMATION
  Report Type: Spontaneous
  Country: US (occurrence: US)
  Receive Date: 20130412
  Receipt Date: 20130412
  Transmission Date: 20140414
  Serious: Yes (Other)
  Sender: FDA-Public Use
  Company Number: PHEH2013US006081

PATIENT
  Age: 74 Year
  Sex: Female
  Weight: 70.45 kg

DRUGS (1)
  1. EXELON PATCH [Suspect]
     Indication: DEMENTIA
     Dosage: 9.5 MG (PATCH 10 CM2), A DAY
     Route: 062
     Dates: start: 20110221, end: 20130206

REACTIONS (3)
  - Skin reaction [Recovered/Resolved]
  - Chemical injury [Recovered/Resolved]
  - Application site vesicles [Recovered/Resolved]
